FAERS Safety Report 24005681 (Version 1)
Quarter: 2024Q2

REPORT INFORMATION
  Report Type: Spontaneous
  Country: CN (occurrence: CN)
  Receive Date: 20240624
  Receipt Date: 20240624
  Transmission Date: 20240716
  Serious: Yes (Hospitalization)
  Sender: FDA-Public Use
  Company Number: CN-PFIZER INC-PV202400082195

PATIENT
  Age: 45 Year
  Sex: Female
  Weight: 40 kg

DRUGS (2)
  1. ZYVOX [Suspect]
     Active Substance: LINEZOLID
     Indication: Anti-infective therapy
     Dosage: 0.6 G, 2X/DAY
     Route: 041
     Dates: start: 20240407, end: 20240410
  2. ZYVOX [Suspect]
     Active Substance: LINEZOLID
     Dosage: 0.6 G, 2X/DAY
     Route: 041
     Dates: start: 20240419, end: 20240423

REACTIONS (4)
  - Rash [Recovering/Resolving]
  - Blister [Recovering/Resolving]
  - Rash vesicular [Recovering/Resolving]
  - Pruritus [Recovering/Resolving]

NARRATIVE: CASE EVENT DATE: 20240407
